FAERS Safety Report 11239498 (Version 1)
Quarter: 2015Q3

REPORT INFORMATION
  Report Type: Spontaneous
  Country: GB (occurrence: GB)
  Receive Date: 20150706
  Receipt Date: 20150706
  Transmission Date: 20151125
  Serious: Yes (Other)
  Sender: FDA-Public Use
  Company Number: GB-TEVA-575332ACC

PATIENT
  Age: 53 Year
  Sex: Female
  Weight: 102 kg

DRUGS (9)
  1. BETAMETHASONE SODIUM PHOSPHATE [Concomitant]
     Active Substance: BETAMETHASONE SODIUM PHOSPHATE
     Dosage: UP TO FOUR TIMES A DAY.
     Dates: start: 20150604, end: 20150605
  2. PARACETAMOL [Concomitant]
     Active Substance: ACETAMINOPHEN
     Dosage: TAKE ONE OR TWO
     Dates: start: 20150602
  3. SERTRALINE [Concomitant]
     Active Substance: SERTRALINE HYDROCHLORIDE
     Dosage: 2 DOSAGE FORMS DAILY;
     Dates: start: 20150428
  4. ERYTHROMYCIN. [Suspect]
     Active Substance: ERYTHROMYCIN
     Dates: start: 20150618
  5. ATORVASTATIN [Concomitant]
     Active Substance: ATORVASTATIN
     Dosage: 1 DOSAGE FORMS DAILY;
     Dates: start: 20150428
  6. QVAR [Concomitant]
     Active Substance: BECLOMETHASONE DIPROPIONATE
     Dosage: 2 DOSAGE FORMS DAILY;
     Route: 055
     Dates: start: 20150428
  7. RANITIDINE [Concomitant]
     Active Substance: RANITIDINE\RANITIDINE HYDROCHLORIDE
     Dosage: 2 DOSAGE FORMS DAILY;
     Dates: start: 20150428
  8. SALBUTAMOL [Concomitant]
     Active Substance: ALBUTEROL
     Dosage: INHALE ONE OR TWO PUFFS WHEN REQUIRED.
     Route: 055
     Dates: start: 20150428
  9. SOFRADEX [Concomitant]
     Active Substance: DEXAMETHASONE\FRAMYCETIN SULFATE\GRAMICIDIN
     Dosage: 3-4 DROPS TO BE TAKEN FOUR TIMES DAILY
     Dates: start: 20150428, end: 20150505

REACTIONS (2)
  - Dyspnoea [Recovered/Resolved]
  - Respiratory rate increased [Recovered/Resolved]

NARRATIVE: CASE EVENT DATE: 20150618
